FAERS Safety Report 24654915 (Version 1)
Quarter: 2024Q4

REPORT INFORMATION
  Report Type: Spontaneous
  Country: US (occurrence: US)
  Receive Date: 20241122
  Receipt Date: 20241122
  Transmission Date: 20250114
  Serious: Yes (Death, Hospitalization)
  Sender: FRESENIUS MEDICAL CARE
  Company Number: US-FMCRTG-FMC-2411-001459

PATIENT
  Age: 75 Year
  Sex: Female
  Weight: 54 kg

DRUGS (3)
  1. DELFLEX WITH DEXTROSE 1.5% LOW MAGNESIUM LOW CALCIUM [Suspect]
     Active Substance: CALCIUM CHLORIDE\DEXTROSE\MAGNESIUM CHLORIDE\SODIUM CHLORIDE\SODIUM LACTATE
     Indication: End stage renal disease
     Dosage: 7 TIMES A WEEK, EXCHANGES 3, FILL VOL 1500 ML, LAST FILL VOL 500 ML CYC THERAPY VOL 5000 ML CYC THER
     Route: 033
  2. DELFLEX WITH DEXTROSE 2.5% LOW MAGNESIUM LOW CALCIUM [Suspect]
     Active Substance: CALCIUM CHLORIDE\DEXTROSE\MAGNESIUM CHLORIDE\SODIUM CHLORIDE\SODIUM LACTATE
     Indication: End stage renal disease
     Dosage: 7 TIMES A WEEK, EXCHANGES 3, FILL VOL 1500 ML, LAST FILL VOL 500 ML CYC THERAPY VOL 5000 ML CYC THER
     Route: 033
  3. DELFLEX WITH DEXTROSE 4.25% LOW MAGNESIUM LOW CALCIUM [Suspect]
     Active Substance: CALCIUM CHLORIDE\DEXTROSE\MAGNESIUM CHLORIDE\SODIUM CHLORIDE\SODIUM LACTATE
     Indication: End stage renal disease
     Dosage: 7 TIMES A WEEK, EXCHANGES 3, FILL VOL 1500 ML, LAST FILL VOL 500 ML CYC THERAPY VOL 5000 ML CYC THER
     Route: 033

REACTIONS (4)
  - Acute cardiac event [Fatal]
  - Sepsis [Fatal]
  - Fungal peritonitis [Fatal]
  - Dehydration [Unknown]
